FAERS Safety Report 17099397 (Version 5)
Quarter: 2020Q1

REPORT INFORMATION
  Report Type: Spontaneous
  Country: US (occurrence: US)
  Receive Date: 20191202
  Receipt Date: 20200116
  Transmission Date: 20200409
  Serious: Yes (Hospitalization)
  Sender: FDA-Public Use
  Company Number: US-PFIZER INC-2019515988

PATIENT
  Age: 92 Year
  Sex: Female
  Weight: 80.27 kg

DRUGS (8)
  1. TIMOLOL MALEATE. [Suspect]
     Active Substance: TIMOLOL MALEATE
     Dosage: 2 GTT, 1X/DAY(1 DROP IN BOTH EYES AT BEDTIME )
     Route: 047
  2. PILOCARPINE HCL [Suspect]
     Active Substance: PILOCARPINE HYDROCHLORIDE
     Dosage: UNK, 2X/DAY (RIGHT EYE TWICE A DAY)
  3. SOLIFENACIN SUCCINATE. [Concomitant]
     Active Substance: SOLIFENACIN SUCCINATE
     Dosage: 10 MG, DAILY
  4. ASPIRIN 81 [Concomitant]
     Active Substance: ASPIRIN
     Dosage: 1 DF, 1X/DAY(AM)
  5. LATANOPROST. [Suspect]
     Active Substance: LATANOPROST
     Dosage: 2 GTT, 1X/DAY (1 DROP IN BOTH EYES AT BEDTIME)
  6. LATANOPROST. [Suspect]
     Active Substance: LATANOPROST
     Indication: GLAUCOMA
     Dosage: 2 GTT, 1X/DAY (INSTILLS 2 DROPS IN RIGHT EYE EVERY NIGHT)
     Route: 047
     Dates: start: 2017
  7. VALSARTAN/HYDROCHLOROTHIAZIDE [Concomitant]
     Active Substance: HYDROCHLOROTHIAZIDE\VALSARTAN
     Dosage: 1 DF, DAILY [HYDROCHLOROTHIAZIDE-25 MG VALSARTAN:320 MG]
  8. GABAPENTIN. [Concomitant]
     Active Substance: GABAPENTIN
     Dosage: 100 MG, 3X/DAY

REACTIONS (6)
  - Hypoacusis [Unknown]
  - Fall [Unknown]
  - Incorrect dose administered [Unknown]
  - Product container issue [Unknown]
  - Musculoskeletal disorder [Unknown]
  - Product dose omission [Unknown]

NARRATIVE: CASE EVENT DATE: 2017
